FAERS Safety Report 10612207 (Version 2)
Quarter: 2014Q4

REPORT INFORMATION
  Report Type: Spontaneous
  Country: IT (occurrence: IT)
  Receive Date: 20141127
  Receipt Date: 20141127
  Transmission Date: 20150529
  Serious: Yes (Hospitalization, Other)
  Sender: FDA-Public Use
  Company Number: IT-AUROBINDO-AUR-APL-2014-08367

PATIENT
  Age: 32 Year
  Sex: Female

DRUGS (3)
  1. TRIAZOLAM AUROBINDO 0.25MG TABLET [Suspect]
     Active Substance: TRIAZOLAM
     Indication: PRODUCT USED FOR UNKNOWN INDICATION
     Dosage: 250 MCG, 20 DF, TOTAL
     Route: 048
     Dates: start: 20140714, end: 20140714
  2. SERTRALINE AUROBINDO [Suspect]
     Active Substance: SERTRALINE HYDROCHLORIDE
     Indication: PRODUCT USED FOR UNKNOWN INDICATION
     Dosage: 300MG 30 DF, TOTAL
     Route: 048
     Dates: start: 20140714, end: 20140714
  3. DIAZEPAM ORAL DROPS [Suspect]
     Active Substance: DIAZEPAM
     Indication: PRODUCT USED FOR UNKNOWN INDICATION
     Dosage: 5MG/ML, 20 ML, TOTAL
     Route: 048
     Dates: start: 20140714, end: 20140714

REACTIONS (6)
  - Intentional self-injury [Unknown]
  - Bundle branch block right [Recovering/Resolving]
  - Drug abuse [Recovering/Resolving]
  - Bradycardia [Recovering/Resolving]
  - Agitation [Recovering/Resolving]
  - Depression [Unknown]

NARRATIVE: CASE EVENT DATE: 20140714
